FAERS Safety Report 5140127-2 (Version None)
Quarter: 2006Q4

REPORT INFORMATION
  Report Type: 
  Country: None (occurrence: None)
  Receive Date: 20061024
  Receipt Date: 20061004
  Transmission Date: 20070319
  Serious: Yes (Death)
  Sender: FDA-Public Use
  Company Number: US200610001237

PATIENT

DRUGS (5)
  1. ZYPREXA [Suspect]
     Dosage: 10 MG, DAILY (1/D), TRANSPLACENTAL
     Route: 064
  2. EFFEXOR [Concomitant]
  3. TRAZODONE HCL [Concomitant]
  4. ACTOS /CAN/ (PIOGLITAZONE HYDROCHLORIDE) [Concomitant]
  5. GLUCOTROL XL [Concomitant]

REACTIONS (2)
  - DEATH NEONATAL [None]
  - DRUG EXPOSURE DURING PREGNANCY [None]
